FAERS Safety Report 8693825 (Version 3)
Quarter: 2012Q4

REPORT INFORMATION
  Report Type: 
  Country: US (occurrence: US)
  Receive Date: 20120731
  Receipt Date: 20121126
  Transmission Date: 20130627
  Serious: Yes (Hospitalization, Other)
  Sender: FDA-Public Use
  Company Number: US-BAYER-2012-073907

PATIENT
  Age: 27 Year
  Sex: Female
  Weight: 66.21 kg

DRUGS (8)
  1. YAZ [Suspect]
     Indication: CONTRACEPTION
     Dosage: UNK
     Dates: start: 20071011, end: 20080712
  2. YAZ [Suspect]
     Indication: MENSTRUAL CYCLE MANAGEMENT
  3. ROBINUL [Concomitant]
     Indication: SWEATING
     Dosage: UNK UNK, TID
  4. GLYCOPYRROLATE [Concomitant]
     Indication: HYPERHIDROSIS
     Dosage: UNK UNK, QD
  5. CODEINE [Concomitant]
  6. IBUPROFEN [Concomitant]
     Dosage: UNK UNK, PRN
  7. PORTIA-28 [Concomitant]
  8. LEVATIN [Concomitant]

REACTIONS (7)
  - Pulmonary embolism [None]
  - Injury [None]
  - Chest pain [None]
  - Dyspnoea [None]
  - Thrombosis [None]
  - Pain [None]
  - Pain in extremity [None]
